FAERS Safety Report 7780476-2 (Version None)
Quarter: 2011Q3

REPORT INFORMATION
  Report Type: 
  Country: None (occurrence: None)
  Receive Date: 20110927
  Receipt Date: 20110609
  Transmission Date: 20111222
  Serious: No
  Sender: FDA-Public Use
  Company Number: US-GLAXOSMITHKLINE-A0930935A

PATIENT
  Sex: Female

DRUGS (3)
  1. AMBIEN [Concomitant]
  2. ZOLOFT [Concomitant]
  3. LAMICTAL [Suspect]
     Indication: PARAESTHESIA
     Dosage: 25MG PER DAY
     Route: 048
     Dates: start: 20110601

REACTIONS (9)
  - WEIGHT DECREASED [None]
  - INSOMNIA [None]
  - DECREASED APPETITE [None]
  - CHEST DISCOMFORT [None]
  - DIZZINESS [None]
  - ANXIETY [None]
  - PALPITATIONS [None]
  - NAUSEA [None]
  - DEPRESSION [None]
